FAERS Safety Report 13305707 (Version 1)
Quarter: 2017Q1

REPORT INFORMATION
  Report Type: Spontaneous
  Country: US (occurrence: US)
  Receive Date: 20170308
  Receipt Date: 20170308
  Transmission Date: 20170428
  Serious: Yes (Other)
  Sender: FDA-Public Use
  Company Number: None

PATIENT
  Age: 43 Year
  Sex: Female
  Weight: 60.75 kg

DRUGS (2)
  1. CIPROFLAXIN [Suspect]
     Active Substance: CIPROFLOXACIN
     Indication: EAR INFECTION
     Route: 048
     Dates: start: 20160711, end: 20160716
  2. VITAMIN D3 [Concomitant]
     Active Substance: CHOLECALCIFEROL

REACTIONS (6)
  - Intervertebral disc protrusion [None]
  - Bone fissure [None]
  - Carpal tunnel syndrome [None]
  - Paraesthesia [None]
  - Hypoaesthesia [None]
  - Myalgia [None]

NARRATIVE: CASE EVENT DATE: 20160711
